FAERS Safety Report 7651710-4 (Version None)
Quarter: 2011Q3

REPORT INFORMATION
  Report Type: 
  Country: None (occurrence: None)
  Receive Date: 20110802
  Receipt Date: 20110719
  Transmission Date: 20111222
  Serious: Yes (Other)
  Sender: FDA-Public Use
  Company Number: US-ASTRAZENECA-2011SE43434

PATIENT
  Age: 83 Year
  Sex: Female

DRUGS (3)
  1. ARIMIDEX [Suspect]
     Route: 048
  2. CRESTOR [Concomitant]
     Route: 048
  3. TAMOXIFEN CITRATE [Concomitant]
     Route: 048

REACTIONS (3)
  - MASTECTOMY [None]
  - THERAPEUTIC RESPONSE UNEXPECTED [None]
  - DRUG EFFECT DECREASED [None]
